FAERS Safety Report 8124425-6 (Version None)
Quarter: 2012Q1

REPORT INFORMATION
  Report Type: 
  Country: None (occurrence: None)
  Receive Date: 20120209
  Receipt Date: 20120201
  Transmission Date: 20120608
  Serious: Yes (Other)
  Sender: FDA-Public Use
  Company Number: JP-JNJFOC-20120104984

PATIENT
  Age: 75 Year
  Sex: Female

DRUGS (4)
  1. SOKEIKAKKETSUTOU [Concomitant]
     Indication: STOMATITIS
     Route: 048
  2. TRAMADOL HYDROCHLORIDE AND ACETAMINOPHEN [Suspect]
     Indication: PAIN
     Dosage: 3 DF X 1 PER 1 DAY
     Route: 048
     Dates: start: 20111114
  3. TRAMADOL HYDROCHLORIDE AND ACETAMINOPHEN [Suspect]
     Dosage: 2 DF X 1 PER 1 DAY
     Route: 048
     Dates: start: 20110810, end: 20111113
  4. TRAMADOL HYDROCHLORIDE AND ACETAMINOPHEN [Suspect]
     Dosage: 3 DF X 1 PER 1 DAY
     Route: 048
     Dates: start: 20110730, end: 20110809

REACTIONS (2)
  - LOSS OF CONSCIOUSNESS [None]
  - NAUSEA [None]
